FAERS Safety Report 8418850-3 (Version None)
Quarter: 2012Q2

REPORT INFORMATION
  Report Type: 
  Country: None (occurrence: None)
  Receive Date: 20120607
  Receipt Date: 20120524
  Transmission Date: 20120825
  Serious: Yes (Hospitalization, Other)
  Sender: FDA-Public Use
  Company Number: US-SHIRE-ALL1-2012-02679

PATIENT
  Sex: Male
  Weight: 18.685 kg

DRUGS (3)
  1. VYVANSE [Suspect]
     Dosage: 30 MG, 1X/DAY:QD
     Route: 048
     Dates: start: 20120101, end: 20120509
  2. VYVANSE [Suspect]
     Indication: ATTENTION DEFICIT/HYPERACTIVITY DISORDER
     Dosage: 20 MG, 1X/DAY:QD
     Route: 048
     Dates: start: 20111001, end: 20120101
  3. AMPHETAMINE AND DEXTROAMPHETAMINE SALTS [Suspect]
     Indication: ATTENTION DEFICIT/HYPERACTIVITY DISORDER
     Dosage: UNK UNK, UNKNOWN
     Route: 048
     Dates: start: 20120101, end: 20120509

REACTIONS (7)
  - PYROMANIA [None]
  - SUICIDAL IDEATION [None]
  - CONDITION AGGRAVATED [None]
  - AGGRESSION [None]
  - MOOD ALTERED [None]
  - DRUG EFFECT DECREASED [None]
  - ANGER [None]
